FAERS Safety Report 15983449 (Version 2)
Quarter: 2019Q1

REPORT INFORMATION
  Report Type: Spontaneous
  Country: CA (occurrence: CA)
  Receive Date: 20190220
  Receipt Date: 20190307
  Transmission Date: 20190418
  Serious: Yes (Disabling)
  Sender: FDA-Public Use
  Company Number: CA-ROCHE-2267306

PATIENT
  Sex: Female

DRUGS (13)
  1. METHOTREXATE. [Suspect]
     Active Substance: METHOTREXATE
     Dosage: 15-25MG
     Route: 058
     Dates: start: 2008, end: 201210
  2. IMURAN [Concomitant]
     Active Substance: AZATHIOPRINE
     Dosage: 100-150MG
     Route: 048
     Dates: start: 2012
  3. NAPROXEN. [Concomitant]
     Active Substance: NAPROXEN
     Route: 065
  4. NAPROSYN [Concomitant]
     Active Substance: NAPROXEN
     Dosage: 375-500MG
     Route: 065
     Dates: start: 2008, end: 2011
  5. AZATHIOPRINE. [Concomitant]
     Active Substance: AZATHIOPRINE
     Dosage: 375-500MG
     Route: 065
     Dates: start: 2008, end: 2011
  6. XELJANZ XR [Concomitant]
     Active Substance: TOFACITINIB CITRATE
     Indication: RHEUMATOID ARTHRITIS
     Route: 065
     Dates: start: 20190131
  7. PREDNISONE. [Concomitant]
     Active Substance: PREDNISONE
     Dosage: 2.5-10 MG
     Route: 065
     Dates: start: 2008
  8. PLAQUENIL [Concomitant]
     Active Substance: HYDROXYCHLOROQUINE SULFATE
     Dosage: 300-400 MG
     Route: 048
     Dates: start: 2008
  9. INDOCID [Concomitant]
     Active Substance: INDOMETHACIN
     Route: 048
     Dates: start: 2011, end: 2015
  10. RITUXAN [Suspect]
     Active Substance: RITUXIMAB
     Indication: RHEUMATOID ARTHRITIS
     Route: 042
     Dates: end: 2017
  11. METHOTREXATE. [Suspect]
     Active Substance: METHOTREXATE
     Indication: PRODUCT USED FOR UNKNOWN INDICATION
     Route: 065
  12. METHOTREXATE. [Suspect]
     Active Substance: METHOTREXATE
     Dosage: 15-25MG
     Route: 048
     Dates: start: 2008, end: 201210
  13. SULFASALAZINE. [Concomitant]
     Active Substance: SULFASALAZINE
     Indication: HYPERSENSITIVITY
     Route: 048
     Dates: start: 201703

REACTIONS (2)
  - Disability [Unknown]
  - Drug ineffective [Unknown]
